FAERS Safety Report 7585735-4 (Version None)
Quarter: 2011Q3

REPORT INFORMATION
  Report Type: 
  Country: None (occurrence: None)
  Receive Date: 20110701
  Receipt Date: 20110624
  Transmission Date: 20111222
  Serious: Yes (Hospitalization)
  Sender: FDA-Public Use
  Company Number: US-B.I. PHARMACEUTICALS,INC./RIDGEFIELD-2011-BP-14463BP

PATIENT
  Sex: Female

DRUGS (19)
  1. MULTAG [Concomitant]
     Indication: ATRIAL FIBRILLATION
     Dates: start: 20110419, end: 20110601
  2. VITAMIN D 2000 [Concomitant]
  3. METOPROLOL TARTRATE [Concomitant]
     Dates: start: 20110308
  4. MULTI VITAMIN AND MINERALS WITH FOLIC ACID, NO K [Concomitant]
  5. ASCORBIC ACID [Concomitant]
  6. VITAMIN B-12 [Concomitant]
  7. PRADAXA [Suspect]
     Indication: ANTICOAGULANT THERAPY
  8. OMERPRAZOLE [Concomitant]
     Indication: GASTROOESOPHAGEAL REFLUX DISEASE
  9. PRADAXA [Suspect]
     Indication: ATRIAL FIBRILLATION
     Dosage: 300 MG
     Route: 048
     Dates: start: 20110208, end: 20110601
  10. MELOXICAM [Concomitant]
     Indication: MUSCULOSKELETAL DISCOMFORT
  11. HYDRALAZINE HCL [Concomitant]
  12. OXYGEN [Concomitant]
     Indication: SLEEP APNOEA SYNDROME
  13. METFORMIN HCL [Concomitant]
  14. DIOVAN [Concomitant]
  15. HYDROCHLOROTHIAZIDE [Concomitant]
  16. SIMVASTATIN [Concomitant]
  17. GABAPENTIN [Concomitant]
     Dates: start: 20090317
  18. CALCIUM 600 MG PLUS D [Concomitant]
  19. FISH OIL [Concomitant]

REACTIONS (7)
  - FREQUENT BOWEL MOVEMENTS [None]
  - PLEURAL EFFUSION [None]
  - ALOPECIA [None]
  - INFLUENZA [None]
  - DIARRHOEA [None]
  - PNEUMONIA [None]
  - DYSPNOEA [None]
